FAERS Safety Report 15656710 (Version 2)
Quarter: 2018Q4

REPORT INFORMATION
  Report Type: Spontaneous
  Country: DE (occurrence: DE)
  Receive Date: 20181126
  Receipt Date: 20181205
  Transmission Date: 20190205
  Serious: Yes (Death, Other)
  Sender: FDA-Public Use
  Company Number: DE-ROCHE-2220441

PATIENT
  Sex: Female

DRUGS (1)
  1. ROACTEMRA [Suspect]
     Active Substance: TOCILIZUMAB
     Indication: PRODUCT USED FOR UNKNOWN INDICATION
     Route: 065
     Dates: start: 2005

REACTIONS (5)
  - Diverticulum intestinal [Unknown]
  - Gastric cancer [Fatal]
  - Metastases to lymph nodes [Unknown]
  - Gastric polyps [Unknown]
  - Metastases to liver [Unknown]

NARRATIVE: CASE EVENT DATE: 2018
